FAERS Safety Report 21057025 (Version 2)
Quarter: 2022Q3

REPORT INFORMATION
  Report Type: Report from Study
  Country: DE (occurrence: None)
  Receive Date: 20220708
  Receipt Date: 20220914
  Transmission Date: 20221027
  Serious: Yes (Hospitalization)
  Sender: FDA-Public Use
  Company Number: DE-ROCHE-3129869

PATIENT
  Age: 34 Year
  Sex: Female
  Weight: 69 kg

DRUGS (14)
  1. ATEZOLIZUMAB [Suspect]
     Active Substance: ATEZOLIZUMAB
     Indication: Triple negative breast cancer
     Dosage: ON 25/MAY/2022, RECEIVED MOST RECENT DOSE OF LAST STUDY ATEZOLIZUMAB (IV) PRIOR TO SERIOUS ADVERSE E
     Route: 042
     Dates: start: 20220217
  2. PACLITAXEL [Suspect]
     Active Substance: PACLITAXEL
     Indication: Triple negative breast cancer
     Dosage: ON 19/MAY/2022, RECEIVED MOST RECENT DOSE OF LAST STUDY PACLITAXEL (IV) PRIOR TO SERIOUS ADVERSE EVE
     Route: 042
     Dates: start: 20220303
  3. CARBOPLATIN [Suspect]
     Active Substance: CARBOPLATIN
     Indication: Triple negative breast cancer
     Dosage: ON 19/MAY/2022, RECEIVED MOST RECENT DOSE OF LAST STUDY CARBOPLATIN (IV) PRIOR TO SERIOUS ADVERSE EV
     Route: 042
     Dates: start: 20220303
  4. EPIRUBICIN [Suspect]
     Active Substance: EPIRUBICIN
     Indication: Triple negative breast cancer
     Dosage: ON 25/MAY/2022, RECEIVED MOST RECENT DOSE OF LAST STUDY EPIRUBICIN (IV) PRIOR TO SERIOUS ADVERSE EVE
     Route: 042
     Dates: start: 20220525
  5. CYCLOPHOSPHAMIDE [Suspect]
     Active Substance: CYCLOPHOSPHAMIDE
     Indication: Triple negative breast cancer
     Dosage: ON 25/MAY/2022, RECEIVED MOST RECENT DOSE OF LAST STUDY CYCLOPHOSPHAMIDE (IV) PRIOR TO SERIOUS ADVER
     Route: 042
     Dates: start: 20220525
  6. LEVOTHYROXINE SODIUM [Concomitant]
     Active Substance: LEVOTHYROXINE SODIUM
     Route: 065
     Dates: start: 201801, end: 20220318
  7. LEVOTHYROXINE SODIUM [Concomitant]
     Active Substance: LEVOTHYROXINE SODIUM
     Route: 065
     Dates: start: 20220420, end: 20220421
  8. LEVOTHYROXINE SODIUM [Concomitant]
     Active Substance: LEVOTHYROXINE SODIUM
     Route: 065
     Dates: start: 20220422, end: 20220728
  9. AMOXICILLIN [Concomitant]
     Active Substance: AMOXICILLIN
     Route: 065
     Dates: start: 20220416, end: 20220422
  10. AMOXICILLIN [Concomitant]
     Active Substance: AMOXICILLIN
     Route: 065
     Dates: start: 20220424
  11. CLAVULANIC ACID [Concomitant]
     Active Substance: CLAVULANIC ACID
     Route: 065
     Dates: start: 20220424, end: 20220503
  12. AMPICILLIN [Concomitant]
     Active Substance: AMPICILLIN
     Route: 065
     Dates: start: 20220422, end: 20220423
  13. SULBACTAM [Concomitant]
     Active Substance: SULBACTAM
     Route: 065
     Dates: start: 20220422, end: 20220423
  14. ACETAMINOPHEN [Concomitant]
     Active Substance: ACETAMINOPHEN
     Route: 065
     Dates: start: 20220422, end: 20220422

REACTIONS (1)
  - Neutropenia [Recovered/Resolved]

NARRATIVE: CASE EVENT DATE: 20220601
